FAERS Safety Report 5604841-4 (Version None)
Quarter: 2008Q1

REPORT INFORMATION
  Report Type: 
  Country: None (occurrence: None)
  Receive Date: 20080128
  Receipt Date: 20080118
  Transmission Date: 20080703
  Serious: Yes (Other)
  Sender: FDA-Public Use
  Company Number: US-KINGPHARMUSA00001-K200800070

PATIENT

DRUGS (2)
  1. BICILLIN L-A [Suspect]
     Indication: LYME DISEASE
     Dosage: 1.2 MILLION UNITS, TWO TIMES A WEEK
     Dates: start: 20071001, end: 20071101
  2. ATIVAN [Concomitant]

REACTIONS (2)
  - HEADACHE [None]
  - MASS [None]
